FAERS Safety Report 8365051-3 (Version None)
Quarter: 2012Q2

REPORT INFORMATION
  Report Type: 
  Country: None (occurrence: None)
  Receive Date: 20120516
  Receipt Date: 20120406
  Transmission Date: 20120825
  Serious: Yes (Other)
  Sender: FDA-Public Use
  Company Number: DE-GLAXOSMITHKLINE-D0075512A

PATIENT
  Sex: Female

DRUGS (3)
  1. FLUTICASONE PROPIONATE/SALMETEROL [Suspect]
     Indication: ASTHMA
     Route: 055
  2. BUDESONIDE [Suspect]
     Dosage: 400MCG TWICE PER DAY
     Route: 055
     Dates: start: 20120301
  3. FORMOTEROL FUMARATE [Suspect]
     Dosage: 12MCG TWICE PER DAY
     Route: 055
     Dates: start: 20120301

REACTIONS (7)
  - COUGH [None]
  - DRUG INEFFECTIVE [None]
  - ASTHMA [None]
  - CHEST PAIN [None]
  - DYSPNOEA EXERTIONAL [None]
  - DYSPNOEA [None]
  - HYPERSENSITIVITY [None]
